FAERS Safety Report 7427264-4 (Version None)
Quarter: 2011Q2

REPORT INFORMATION
  Report Type: 
  Country: None (occurrence: None)
  Receive Date: 20110420
  Receipt Date: 20110414
  Transmission Date: 20111010
  Serious: Yes (Other)
  Sender: FDA-Public Use
  Company Number: CA-PFIZER INC-2011083147

PATIENT
  Sex: Female
  Weight: 80 kg

DRUGS (5)
  1. BISOPROLOL [Concomitant]
     Indication: HYPERTENSION
     Dosage: 2.5 MG, UNK
  2. LYRICA [Suspect]
     Indication: BACK PAIN
     Dosage: 50 MG IN THE MORNING AND 125 MG AT NIGHT
     Dates: start: 20110101
  3. SYNTHROID [Concomitant]
     Dosage: 0.112 MG, UNK
  4. HYDROCHLOROTHIAZIDE [Concomitant]
     Indication: HYPERTENSION
     Dosage: UNK
  5. MINOCYCLINE [Concomitant]
     Indication: SKIN DISORDER
     Dosage: UNK

REACTIONS (4)
  - THROMBOPHLEBITIS [None]
  - POLLAKIURIA [None]
  - MALAISE [None]
  - FEELING HOT [None]
